FAERS Safety Report 15299839 (Version 3)
Quarter: 2021Q4

REPORT INFORMATION
  Report Type: Report from Study
  Country: US (occurrence: US)
  Receive Date: 20180821
  Receipt Date: 20211117
  Transmission Date: 20220303
  Serious: Yes (Other)
  Sender: FDA-Public Use
  Company Number: US-BRISTOL-MYERS SQUIBB COMPANY-BMS-2018-078038

PATIENT
  Age: 45 Year
  Sex: Female

DRUGS (4)
  1. NIVOLUMAB [Suspect]
     Active Substance: NIVOLUMAB
     Indication: Pituitary tumour benign
     Dosage: 1 MG/KG, Q3WK
     Route: 065
     Dates: start: 20171215
  2. NIVOLUMAB [Suspect]
     Active Substance: NIVOLUMAB
     Dosage: UNK
     Route: 065
     Dates: start: 20191105, end: 20200421
  3. IPILIMUMAB [Suspect]
     Active Substance: IPILIMUMAB
     Indication: Pituitary tumour benign
     Dosage: 3 MG/KG, Q3WK
     Route: 065
     Dates: start: 20171215
  4. IPILIMUMAB [Suspect]
     Active Substance: IPILIMUMAB
     Dosage: UNK
     Route: 065
     Dates: start: 20191105, end: 20200421

REACTIONS (6)
  - Pyrexia [Recovered/Resolved]
  - Transaminases increased [Recovered/Resolved]
  - Tumour pseudoprogression [Unknown]
  - Hypophysitis [Unknown]
  - Hypopituitarism [Unknown]
  - Intentional product use issue [Unknown]
